FAERS Safety Report 16338472 (Version 1)
Quarter: 2019Q2

REPORT INFORMATION
  Report Type: Report from Study
  Country: FR (occurrence: FR)
  Receive Date: 20190521
  Receipt Date: 20190521
  Transmission Date: 20190711
  Serious: Yes (Other)
  Sender: FDA-Public Use
  Company Number: FR-TAKEDA-2019TUS030001

PATIENT
  Age: 33 Year
  Sex: Female
  Weight: 46 kg

DRUGS (1)
  1. VEDOLIZUMAB [Suspect]
     Active Substance: VEDOLIZUMAB
     Indication: CROHN^S DISEASE
     Dosage: 300 MILLIGRAM
     Route: 042
     Dates: start: 20140825, end: 201502

REACTIONS (2)
  - Psoriasis [Recovering/Resolving]
  - Folliculitis [Unknown]

NARRATIVE: CASE EVENT DATE: 20140922
